FAERS Safety Report 12859906 (Version 1)
Quarter: 2016Q4

REPORT INFORMATION
  Report Type: Report from Study
  Country: NL (occurrence: NL)
  Receive Date: 20161018
  Receipt Date: 20161018
  Transmission Date: 20170207
  Serious: Yes (Hospitalization, Other)
  Sender: FDA-Public Use
  Company Number: NL-B.I. PHARMACEUTICALS,INC./RIDGEFIELD-2016-BI-25261BI

PATIENT
  Age: 65 Year
  Sex: Male
  Weight: 95 kg

DRUGS (2)
  1. BIBF 1120 [Suspect]
     Active Substance: NINTEDANIB
     Indication: IDIOPATHIC PULMONARY FIBROSIS
     Route: 048
     Dates: start: 20160408, end: 20160502
  2. PANTOPRAZOL [Concomitant]
     Active Substance: PANTOPRAZOLE SODIUM
     Indication: PORTAL VEIN THROMBOSIS
     Route: 048
     Dates: start: 201505

REACTIONS (3)
  - Encephalopathy [Recovered/Resolved]
  - Hepatic cirrhosis [Not Recovered/Not Resolved]
  - Fatigue [Recovered/Resolved]

NARRATIVE: CASE EVENT DATE: 20160419
